FAERS Safety Report 13924397 (Version 1)
Quarter: 2017Q3

REPORT INFORMATION
  Report Type: Spontaneous
  Country: US (occurrence: US)
  Receive Date: 20170831
  Receipt Date: 20170831
  Transmission Date: 20171127
  Serious: Yes (Other)
  Sender: FDA-Public Use
  Company Number: PHHY2017US125701

PATIENT
  Age: 7 Week
  Sex: Male

DRUGS (3)
  1. DEFEROXAMINE [Suspect]
     Active Substance: DEFEROXAMINE\DEFEROXAMINE MESYLATE
     Dosage: 10 MG/KG, QH
     Route: 041
  2. DEFEROXAMINE [Suspect]
     Active Substance: DEFEROXAMINE\DEFEROXAMINE MESYLATE
     Dosage: 15 MG/KG, QH
     Route: 041
  3. DEFEROXAMINE [Suspect]
     Active Substance: DEFEROXAMINE\DEFEROXAMINE MESYLATE
     Indication: PRODUCT USED FOR UNKNOWN INDICATION
     Dosage: 5 MG/KG, QH
     Route: 041

REACTIONS (4)
  - Pneumomediastinum [Recovering/Resolving]
  - Pneumothorax [Recovering/Resolving]
  - Sepsis [Recovering/Resolving]
  - Respiratory distress [Recovering/Resolving]
